FAERS Safety Report 23671465 (Version 1)
Quarter: 2024Q1

REPORT INFORMATION
  Report Type: Spontaneous
  Country: JP (occurrence: JP)
  Receive Date: 20240326
  Receipt Date: 20240326
  Transmission Date: 20240410
  Serious: Yes (Other)
  Sender: FDA-Public Use
  Company Number: JP-BRISTOL-MYERS SQUIBB COMPANY-2024-043470

PATIENT
  Age: 73 Year
  Sex: Male

DRUGS (1)
  1. ELIQUIS [Suspect]
     Active Substance: APIXABAN
     Indication: Deep vein thrombosis
     Dosage: DOSE : 5MG;     FREQ : TWICE DAILY

REACTIONS (6)
  - Vomiting [Unknown]
  - Gastrointestinal oedema [Unknown]
  - Intestinal obstruction [Unknown]
  - Acute kidney injury [Unknown]
  - White blood cell count increased [Unknown]
  - C-reactive protein increased [Unknown]
